FAERS Safety Report 17046588 (Version 1)
Quarter: 2019Q4

REPORT INFORMATION
  Report Type: Spontaneous
  Country: GB (occurrence: GB)
  Receive Date: 20191119
  Receipt Date: 20191119
  Transmission Date: 20200122
  Serious: Yes (Hospitalization)
  Sender: FDA-Public Use
  Company Number: GB-TEVA-2019-GB-1138232

PATIENT
  Age: 57 Year
  Sex: Female

DRUGS (9)
  1. MEBEVERINE [Concomitant]
     Active Substance: MEBEVERINE
  2. SALBUTAMOL [Concomitant]
     Active Substance: ALBUTEROL
  3. LANSOPRAZOLE. [Concomitant]
     Active Substance: LANSOPRAZOLE
  4. BECLOMETASONE [Concomitant]
     Active Substance: BECLOMETHASONE DIPROPIONATE
  5. CYANOCOBALAMIN. [Concomitant]
     Active Substance: CYANOCOBALAMIN
  6. ERLOTINIB [Suspect]
     Active Substance: ERLOTINIB
     Route: 065
  7. FOLIC ACID. [Concomitant]
     Active Substance: FOLIC ACID
  8. CYCLIZINE [Concomitant]
     Active Substance: CYCLIZINE
  9. DEXAMETHASONE. [Concomitant]
     Active Substance: DEXAMETHASONE

REACTIONS (1)
  - Acute febrile neutrophilic dermatosis [Unknown]
